FAERS Safety Report 6663569-2 (Version None)
Quarter: 2010Q2

REPORT INFORMATION
  Report Type: 
  Country: None (occurrence: None)
  Receive Date: 20100401
  Receipt Date: 20100326
  Transmission Date: 20101027
  Serious: Yes (Other)
  Sender: FDA-Public Use
  Company Number: US-SANOFI-AVENTIS-2010SA009486

PATIENT
  Age: 39 Year
  Sex: Male

DRUGS (1)
  1. CARAC [Suspect]
     Indication: ACTINIC KERATOSIS
     Dosage: QHS X 7 DAYS EACH MONTH X 3 MONTHS- TOTAL OF 21 DAYS
     Route: 003
     Dates: start: 20100110, end: 20100212

REACTIONS (2)
  - FACIAL PALSY [None]
  - HEAD DEFORMITY [None]
